FAERS Safety Report 17005158 (Version 1)
Quarter: 2019Q4

REPORT INFORMATION
  Report Type: Report from Study
  Country: US (occurrence: US)
  Receive Date: 20191107
  Receipt Date: 20191107
  Transmission Date: 20200122
  Serious: Yes (Hospitalization)
  Sender: FDA-Public Use
  Company Number: NVSC2019US001710

PATIENT
  Age: 12 Year
  Sex: Female
  Weight: 50.3 kg

DRUGS (8)
  1. HYDROMORPHONE [Concomitant]
     Active Substance: HYDROMORPHONE
     Indication: PRODUCT USED FOR UNKNOWN INDICATION
     Dosage: 0.5 MG, QD
     Route: 048
     Dates: start: 20181126
  2. KYMRIAH [Suspect]
     Active Substance: TISAGENLECLEUCEL
     Dosage: 3.3E+06 CART19 CELLS/KG,  1.5E+08 CART19 CELLS AND 4.14E+08 TOTAL CELLS (30%), ONCE
     Route: 042
     Dates: start: 20190206, end: 20190206
  3. KYMRIAH [Suspect]
     Active Substance: TISAGENLECLEUCEL
     Dosage: 3.30E+06 CART19 CELLS/KG, 1.5E+08 CART19 CELLS AND 4.14E+08 TOTAL CELLS
     Route: 042
     Dates: start: 20190610, end: 20190610
  4. IMMUNOGLOBULIN [Concomitant]
     Indication: PRODUCT USED FOR UNKNOWN INDICATION
     Dosage: EVERY 28 DAYS
     Route: 042
     Dates: start: 20190207
  5. CLONAZEPAM. [Concomitant]
     Active Substance: CLONAZEPAM
     Indication: PRODUCT USED FOR UNKNOWN INDICATION
     Dosage: 0.5 MG, BID
     Route: 048
     Dates: start: 20190128
  6. BACTRIM [Concomitant]
     Active Substance: SULFAMETHOXAZOLE\TRIMETHOPRIM
     Indication: PRODUCT USED FOR UNKNOWN INDICATION
     Dosage: TWICE A DAY EVERY MONDAY AND TUESDAY
     Route: 065
     Dates: start: 2018
  7. KYMRIAH [Suspect]
     Active Substance: TISAGENLECLEUCEL
     Indication: ACUTE LYMPHOCYTIC LEUKAEMIA
     Dosage: 1.1E+06 CART19 CELLS/KG, 5E+07 CART19 CELLS AND 1.38E+08 TOTAL CELLS (10%), ONCE
     Route: 042
     Dates: start: 20190205, end: 20190205
  8. KYMRIAH [Suspect]
     Active Substance: TISAGENLECLEUCEL
     Dosage: 3.30E+06 CART19 CELLS/KG, 1.5E+08 CART19 CELLS, 4.14E+08 TOTAL CELLS
     Route: 042
     Dates: start: 20190812, end: 20190812

REACTIONS (1)
  - Gastroenteritis [Recovered/Resolved]

NARRATIVE: CASE EVENT DATE: 20190915
